FAERS Safety Report 9357283 (Version 4)
Quarter: 2013Q3

REPORT INFORMATION
  Report Type: Spontaneous
  Country: JP (occurrence: JP)
  Receive Date: 20130620
  Receipt Date: 20130903
  Transmission Date: 20140515
  Serious: Yes (Other)
  Sender: FDA-Public Use
  Company Number: JP-JNJFOC-20130608736

PATIENT
  Age: 53 Year
  Sex: Male

DRUGS (3)
  1. FINIBAX [Suspect]
     Indication: PNEUMONIA
     Route: 041
     Dates: start: 20130525, end: 20130529
  2. ELASPOL [Concomitant]
     Indication: ACUTE RESPIRATORY DISTRESS SYNDROME
     Route: 065
     Dates: start: 20130525, end: 20130608
  3. ROPION [Concomitant]
     Indication: MEDIASTINITIS
     Route: 065
     Dates: start: 20130523, end: 20130608

REACTIONS (1)
  - Clonic convulsion [Recovered/Resolved]
